FAERS Safety Report 7315244-9 (Version None)
Quarter: 2011Q1

REPORT INFORMATION
  Report Type: 
  Country: None (occurrence: None)
  Receive Date: 20110225
  Receipt Date: 20110222
  Transmission Date: 20110831
  Serious: Yes (Other)
  Sender: FDA-Public Use
  Company Number: JP-PFIZER INC-2010128981

PATIENT
  Sex: Male

DRUGS (1)
  1. DIACORT [Suspect]

REACTIONS (3)
  - ADRENAL INSUFFICIENCY [None]
  - PHOTOPSIA [None]
  - CATARACT [None]
